FAERS Safety Report 20525628 (Version 1)
Quarter: 2022Q1

REPORT INFORMATION
  Report Type: Spontaneous
  Country: US (occurrence: US)
  Receive Date: 20220228
  Receipt Date: 20220228
  Transmission Date: 20220423
  Serious: No
  Sender: FDA-Public Use
  Company Number: US-PFIZER INC-2021665131

PATIENT
  Age: 66 Year
  Sex: Female
  Weight: 79.38 kg

DRUGS (3)
  1. XELJANZ XR [Suspect]
     Active Substance: TOFACITINIB CITRATE
     Indication: Psoriatic arthropathy
     Dosage: 11 MG, DAILY (, TAKE 1 TABLET BY MOUTH EVERYDAY )
  2. INSULIN NOS [Concomitant]
     Active Substance: INSULIN NOS
     Dosage: 70 IU
  3. OXYCODONE [Concomitant]
     Active Substance: OXYCODONE
     Dosage: 10 MG, 3X/DAY

REACTIONS (6)
  - Product dose omission issue [Unknown]
  - Tremor [Unknown]
  - Skin burning sensation [Unknown]
  - Pain [Unknown]
  - Gait disturbance [Unknown]
  - Joint swelling [Unknown]
